FAERS Safety Report 13137794 (Version 4)
Quarter: 2017Q1

REPORT INFORMATION
  Report Type: Spontaneous
  Country: US (occurrence: US)
  Receive Date: 20170123
  Receipt Date: 20170123
  Transmission Date: 20170428
  Serious: Yes (Hospitalization)
  Sender: FDA-Public Use
  Company Number: US-UNITED THERAPEUTICS-UNT-2016-013103

PATIENT
  Age: 49 Year
  Sex: Female
  Weight: 75.74 kg

DRUGS (3)
  1. REVATIO [Concomitant]
     Active Substance: SILDENAFIL CITRATE
     Indication: PRODUCT USED FOR UNKNOWN INDICATION
  2. REMODULIN [Suspect]
     Active Substance: TREPROSTINIL
     Dosage: 0.097 ?G/KG, CONTINUING
     Route: 041
  3. REMODULIN [Suspect]
     Active Substance: TREPROSTINIL
     Indication: PULMONARY HYPERTENSION
     Dosage: 0.099 ?G/KG, CONTINUING
     Route: 041
     Dates: start: 20151113

REACTIONS (2)
  - Device alarm issue [Unknown]
  - Thrombosis in device [Unknown]

NARRATIVE: CASE EVENT DATE: 201608
